FAERS Safety Report 7426770-6 (Version None)
Quarter: 2011Q2

REPORT INFORMATION
  Report Type: 
  Country: None (occurrence: None)
  Receive Date: 20110420
  Receipt Date: 20110414
  Transmission Date: 20111010
  Serious: Yes (Other)
  Sender: FDA-Public Use
  Company Number: US-AMGEN-USASP2011019842

PATIENT
  Age: 88 Year
  Sex: Female

DRUGS (2)
  1. PROLIA [Suspect]
     Indication: OSTEOPOROSIS POSTMENOPAUSAL
     Dates: start: 20100101
  2. VITAMINS                           /00067501/ [Concomitant]

REACTIONS (6)
  - CARDIAC DISORDER [None]
  - CONTUSION [None]
  - GAIT DISTURBANCE [None]
  - SPIDER VEIN [None]
  - MUSCULAR WEAKNESS [None]
  - ASTHENIA [None]
